FAERS Safety Report 11933757 (Version 28)
Quarter: 2021Q2

REPORT INFORMATION
  Report Type: Other
  Country: CA (occurrence: CA)
  Receive Date: 20160121
  Receipt Date: 20210428
  Transmission Date: 20210716
  Serious: Yes (Hospitalization, Other)
  Sender: FDA-Public Use
  Company Number: CA-ROCHE-1434589

PATIENT
  Age: 73 Year
  Sex: Female
  Weight: 79 kg

DRUGS (31)
  1. ACTEMRA [Suspect]
     Active Substance: TOCILIZUMAB
     Route: 042
     Dates: start: 20141201
  2. ACTEMRA [Suspect]
     Active Substance: TOCILIZUMAB
     Route: 042
     Dates: start: 20151029
  3. ACTEMRA [Suspect]
     Active Substance: TOCILIZUMAB
     Route: 042
     Dates: start: 2020
  4. METFORMIN [Concomitant]
     Active Substance: METFORMIN HYDROCHLORIDE
  5. FOLIC ACID. [Concomitant]
     Active Substance: FOLIC ACID
  6. ACTEMRA [Suspect]
     Active Substance: TOCILIZUMAB
     Indication: GIANT CELL ARTERITIS
     Route: 042
     Dates: start: 20140709, end: 20141126
  7. ACTEMRA [Suspect]
     Active Substance: TOCILIZUMAB
     Route: 042
     Dates: start: 20141001
  8. ACTEMRA [Suspect]
     Active Substance: TOCILIZUMAB
     Route: 042
     Dates: start: 2018, end: 2020
  9. ACTEMRA [Suspect]
     Active Substance: TOCILIZUMAB
     Route: 042
     Dates: start: 2020, end: 2020
  10. ACTEMRA [Suspect]
     Active Substance: TOCILIZUMAB
     Route: 042
     Dates: start: 20141126
  11. ACTEMRA [Suspect]
     Active Substance: TOCILIZUMAB
     Route: 042
     Dates: start: 20150120
  12. ACTEMRA [Suspect]
     Active Substance: TOCILIZUMAB
     Route: 042
     Dates: start: 20160216, end: 20160613
  13. LEUCOVORIN CALCIUM. [Concomitant]
     Active Substance: LEUCOVORIN CALCIUM
  14. ALLOPURINOL. [Concomitant]
     Active Substance: ALLOPURINOL
     Indication: PRODUCT USED FOR UNKNOWN INDICATION
  15. ACTEMRA [Suspect]
     Active Substance: TOCILIZUMAB
     Route: 042
     Dates: start: 20151124, end: 20160119
  16. ACTEMRA [Suspect]
     Active Substance: TOCILIZUMAB
     Route: 042
     Dates: start: 20140709
  17. ACTEMRA [Suspect]
     Active Substance: TOCILIZUMAB
     Route: 042
     Dates: start: 2020
  18. TECTA [Concomitant]
     Active Substance: PANTOPRAZOLE MAGNESIUM
  19. COENZYME Q10 [Concomitant]
     Active Substance: DIETARY SUPPLEMENT\UBIDECARENONE
     Route: 065
  20. ACTEMRA [Suspect]
     Active Substance: TOCILIZUMAB
     Indication: VASCULITIS
     Route: 042
     Dates: start: 20140806
  21. ACTEMRA [Suspect]
     Active Substance: TOCILIZUMAB
     Route: 042
     Dates: start: 201809
  22. PREDNISONE. [Concomitant]
     Active Substance: PREDNISONE
  23. VITAMIN D3 [Concomitant]
     Active Substance: CHOLECALCIFEROL
  24. OXAZEPAM. [Concomitant]
     Active Substance: OXAZEPAM
  25. ZOPLICONE [Concomitant]
     Active Substance: ZOPICLONE
     Indication: PRODUCT USED FOR UNKNOWN INDICATION
  26. PANTOPRAZOLE [Concomitant]
     Active Substance: PANTOPRAZOLE
     Indication: PRODUCT USED FOR UNKNOWN INDICATION
  27. METHOTREXATE. [Concomitant]
     Active Substance: METHOTREXATE
  28. ALENDRONATE [Concomitant]
     Active Substance: ALENDRONATE SODIUM
  29. ACTEMRA [Suspect]
     Active Substance: TOCILIZUMAB
     Route: 042
     Dates: start: 20141223, end: 20151027
  30. ACTEMRA [Suspect]
     Active Substance: TOCILIZUMAB
     Route: 042
     Dates: start: 20160719, end: 2018
  31. GLICLAZIDE [Concomitant]
     Active Substance: GLICLAZIDE
     Indication: PRODUCT USED FOR UNKNOWN INDICATION

REACTIONS (43)
  - Diverticulitis [Unknown]
  - Poor venous access [Unknown]
  - Heart rate decreased [Unknown]
  - Sinusitis [Not Recovered/Not Resolved]
  - Lactic acidosis [Unknown]
  - Joint swelling [Recovering/Resolving]
  - Paraesthesia [Recovering/Resolving]
  - Musculoskeletal chest pain [Recovered/Resolved]
  - Product use in unapproved indication [Unknown]
  - Oropharyngeal blistering [Unknown]
  - Dysphagia [Unknown]
  - Vasospasm [Unknown]
  - Alopecia [Unknown]
  - Blood pressure increased [Unknown]
  - Blood pressure systolic increased [Unknown]
  - Asthenia [Recovering/Resolving]
  - Blood cholesterol increased [Not Recovered/Not Resolved]
  - Weight decreased [Unknown]
  - Blood pressure diastolic abnormal [Unknown]
  - Blood pressure systolic abnormal [Unknown]
  - Chest pain [Recovered/Resolved]
  - Cataract [Not Recovered/Not Resolved]
  - Off label use [Unknown]
  - Weight increased [Unknown]
  - Arthralgia [Recovering/Resolving]
  - Sinusitis [Unknown]
  - Gastritis [Unknown]
  - Pain in extremity [Recovered/Resolved]
  - Blood creatinine increased [Unknown]
  - Nausea [Recovered/Resolved]
  - Alanine aminotransferase increased [Unknown]
  - Poor venous access [Recovered/Resolved]
  - Infusion related reaction [Unknown]
  - Tooth disorder [Unknown]
  - Heart rate decreased [Unknown]
  - Joint injury [Unknown]
  - Oropharyngeal pain [Not Recovered/Not Resolved]
  - Cardiac flutter [Recovered/Resolved]
  - Dizziness [Unknown]
  - Nasopharyngitis [Unknown]
  - Tooth abscess [Recovered/Resolved]
  - Flank pain [Unknown]
  - Ear pain [Not Recovered/Not Resolved]

NARRATIVE: CASE EVENT DATE: 20140806
